FAERS Safety Report 15428011 (Version 1)
Quarter: 2018Q3

REPORT INFORMATION
  Report Type: Spontaneous
  Country: US (occurrence: US)
  Receive Date: 20180926
  Receipt Date: 20180926
  Transmission Date: 20181010
  Serious: No
  Sender: FDA-Public Use
  Company Number: US-PRINSTON PHARMACEUTICAL INC.-2018PRN00765

PATIENT
  Sex: Male

DRUGS (1)
  1. VALSARTAN. [Suspect]
     Active Substance: VALSARTAN
     Indication: HYPERTENSION
     Dosage: 40 MG, 2X/DAY
     Route: 048
     Dates: start: 201803, end: 2018

REACTIONS (2)
  - Anxiety [Recovering/Resolving]
  - Feeling of despair [Recovering/Resolving]

NARRATIVE: CASE EVENT DATE: 2018
